FAERS Safety Report 25146404 (Version 1)
Quarter: 2025Q2

REPORT INFORMATION
  Report Type: Spontaneous
  Country: ES (occurrence: ES)
  Receive Date: 20250401
  Receipt Date: 20250401
  Transmission Date: 20250716
  Serious: Yes (Other)
  Sender: DAIICHI
  Company Number: ES-DSJP-DS-2025-131630-ES

PATIENT
  Age: 27 Year
  Sex: Female

DRUGS (1)
  1. TRASTUZUMAB DERUXTECAN [Suspect]
     Active Substance: TRASTUZUMAB DERUXTECAN
     Indication: HER2 low breast cancer
     Dosage: 5.4 MG/KG, ONCE EVERY 3 WK
     Route: 042
     Dates: start: 20230801, end: 20230801

REACTIONS (10)
  - Pneumonia [Unknown]
  - Blindness unilateral [Unknown]
  - Disease progression [Unknown]
  - Pulmonary fibrosis [Unknown]
  - Asthenia [Unknown]
  - Nausea [Unknown]
  - Therapy partial responder [Unknown]
  - Headache [Unknown]
  - Muscular weakness [Unknown]
  - Gait disturbance [Unknown]

NARRATIVE: CASE EVENT DATE: 20240301
